FAERS Safety Report 17888871 (Version 1)
Quarter: 2020Q2

REPORT INFORMATION
  Report Type: Report from Study
  Country: CA (occurrence: CA)
  Receive Date: 20200612
  Receipt Date: 20200612
  Transmission Date: 20200714
  Serious: Yes (Hospitalization, Other)
  Sender: FDA-Public Use
  Company Number: CA-PFIZER INC-2020227458

PATIENT
  Age: 73 Year
  Sex: Male

DRUGS (5)
  1. VENTOLIN [Concomitant]
     Active Substance: ALBUTEROL SULFATE
     Dosage: 2 DF
     Route: 048
  2. MORPHINE SULFATE. [Suspect]
     Active Substance: MORPHINE SULFATE
     Dosage: UNK
  3. SYMBICORT [Concomitant]
     Active Substance: BUDESONIDE\FORMOTEROL FUMARATE DIHYDRATE
     Dosage: 1 DF, 1 EVERY 1 DAYS
  4. HYDROMORPHONE HYDROCHLORIDE. [Suspect]
     Active Substance: HYDROMORPHONE HYDROCHLORIDE
     Indication: ABDOMINAL PAIN
     Dosage: UNK
  5. OMALIZUMAB. [Suspect]
     Active Substance: OMALIZUMAB
     Indication: CHRONIC SPONTANEOUS URTICARIA
     Dosage: 150 MG
     Route: 058

REACTIONS (16)
  - Basal cell carcinoma [Unknown]
  - Ileus [Unknown]
  - Vomiting [Unknown]
  - Abdominal pain [Unknown]
  - Allergy to metals [Unknown]
  - Ill-defined disorder [Unknown]
  - Impaired healing [Unknown]
  - Asthma [Unknown]
  - Diarrhoea [Unknown]
  - Drug hypersensitivity [Unknown]
  - Angioedema [Unknown]
  - Nausea [Unknown]
  - Allergy to chemicals [Unknown]
  - Pruritus [Unknown]
  - Rash [Unknown]
  - Psoriasis [Unknown]
